FAERS Safety Report 14512083 (Version 1)
Quarter: 2018Q1

REPORT INFORMATION
  Report Type: Spontaneous
  Country: GB (occurrence: GB)
  Receive Date: 20180209
  Receipt Date: 20180209
  Transmission Date: 20180509
  Serious: Yes (Hospitalization)
  Sender: FDA-Public Use
  Company Number: GB-US WORLDMEDS, LLC-USW201802-000193

PATIENT
  Sex: Male

DRUGS (1)
  1. APOMORPHINE HYDROCHLORIDE [Suspect]
     Active Substance: APOMORPHINE HYDROCHLORIDE
     Indication: PRODUCT USED FOR UNKNOWN INDICATION

REACTIONS (5)
  - Coma scale abnormal [Unknown]
  - Product name confusion [Unknown]
  - Underdose [Unknown]
  - Injection site nodule [Unknown]
  - Incorrect dose administered [Unknown]
